FAERS Safety Report 5024712-4 (Version None)
Quarter: 2006Q2

REPORT INFORMATION
  Report Type: 
  Country: None (occurrence: None)
  Receive Date: 20060426
  Receipt Date: 20060209
  Transmission Date: 20061013
  Serious: Yes (Other)
  Sender: FDA-Public Use
  Company Number: 2006021700

PATIENT
  Age: 86 Year
  Sex: Female
  Weight: 51.7101 kg

DRUGS (3)
  1. LYRICA [Suspect]
     Indication: HERPES ZOSTER
     Dosage: 75 MG (75 MG, 1 IN 1 D)
     Dates: start: 20050901
  2. COUMADIN [Concomitant]
  3. DARVOCET [Concomitant]

REACTIONS (4)
  - DIZZINESS [None]
  - DRUG HYPERSENSITIVITY [None]
  - FEELING DRUNK [None]
  - SOMNOLENCE [None]
